FAERS Safety Report 7820378-6 (Version None)
Quarter: 2011Q4

REPORT INFORMATION
  Report Type: 
  Country: None (occurrence: None)
  Receive Date: 20111018
  Receipt Date: 20111006
  Transmission Date: 20120403
  Serious: Yes (Other)
  Sender: FDA-Public Use
  Company Number: US-BAYER-2011-015779

PATIENT
  Sex: Female
  Weight: 68.027 kg

DRUGS (9)
  1. YAZ [Suspect]
     Indication: PREMENSTRUAL SYNDROME
     Dosage: UNK
     Route: 048
     Dates: start: 20071018, end: 20071224
  2. ANTIBIOTICS [Concomitant]
     Dosage: UNK
     Dates: start: 20000101
  3. GARDASIL [Concomitant]
  4. JOLESSA [Concomitant]
     Dosage: UNK
     Dates: start: 20090101
  5. PRILOSEC [Concomitant]
  6. OMEPRAZOLE [Concomitant]
  7. ACIPHEX [Concomitant]
  8. MOTRIN [Concomitant]
     Indication: MIGRAINE
  9. IBUPROFEN [Concomitant]
     Indication: DYSMENORRHOEA

REACTIONS (7)
  - PAIN [None]
  - ANXIETY [None]
  - GALLBLADDER DISORDER [None]
  - BILIARY DYSKINESIA [None]
  - CHEST PAIN [None]
  - BACK PAIN [None]
  - ABDOMINAL PAIN UPPER [None]
